FAERS Safety Report 7781994-3 (Version None)
Quarter: 2011Q3

REPORT INFORMATION
  Report Type: 
  Country: None (occurrence: None)
  Receive Date: 20110927
  Receipt Date: 20110914
  Transmission Date: 20111222
  Serious: Yes (Other)
  Sender: FDA-Public Use
  Company Number: PHHY2011BR51079

PATIENT
  Sex: Female

DRUGS (2)
  1. FORMOTEROL FUMARATE [Suspect]
     Dosage: UNK
     Dates: start: 20110501
  2. FORMOTEROL FUMARATE [Suspect]
     Indication: ALLERGIC BRONCHITIS
     Dosage: 1 CAPSULE OF EACH TREATMENT TWICE A DAY
     Dates: start: 20100101

REACTIONS (2)
  - BLOOD IMMUNOGLOBULIN E INCREASED [None]
  - WRONG TECHNIQUE IN DRUG USAGE PROCESS [None]
